FAERS Safety Report 7005028-3 (Version None)
Quarter: 2010Q3

REPORT INFORMATION
  Report Type: 
  Country: None (occurrence: None)
  Receive Date: 20100921
  Receipt Date: 20100915
  Transmission Date: 20110219
  Serious: Yes (Death, Life-Threatening, Hospitalization)
  Sender: FDA-Public Use
  Company Number: DK-CELGENEUS-044-21880-10091408

PATIENT
  Sex: Male
  Weight: 70 kg

DRUGS (4)
  1. REVLIMID [Suspect]
     Route: 048
     Dates: start: 20100828, end: 20100907
  2. DEXAMETHASONE [Concomitant]
     Route: 048
     Dates: start: 20100828, end: 20100907
  3. INNOHEP [Concomitant]
     Indication: DEEP VEIN THROMBOSIS
     Route: 050
     Dates: start: 20100828, end: 20100907
  4. MAREVAN ^NYCOMED^ [Concomitant]
     Indication: DEEP VEIN THROMBOSIS
     Route: 065
     Dates: start: 20100828, end: 20100907

REACTIONS (3)
  - ACUTE HEPATIC FAILURE [None]
  - NEPHROPATHY [None]
  - SEPSIS [None]
